FAERS Safety Report 5420281-5 (Version None)
Quarter: 2007Q3

REPORT INFORMATION
  Report Type: 
  Country: None (occurrence: None)
  Receive Date: 20070718
  Receipt Date: 20060818
  Transmission Date: 20080115
  Serious: Yes (Hospitalization, Other)
  Sender: FDA-Public Use
  Company Number: 2006080531

PATIENT
  Age: 51 Year
  Sex: Male
  Weight: 84.369 kg

DRUGS (1)
  1. CELEBREX [Suspect]
     Indication: ARTHRITIS
     Dosage: (200 MG, UNKNOWN)
     Dates: start: 19990401, end: 20040114

REACTIONS (1)
  - MYOCARDIAL INFARCTION [None]
